FAERS Safety Report 17053992 (Version 3)
Quarter: 2020Q1

REPORT INFORMATION
  Report Type: Spontaneous
  Country: US (occurrence: US)
  Receive Date: 20191120
  Receipt Date: 20200331
  Transmission Date: 20200409
  Serious: Yes (Other)
  Sender: FDA-Public Use
  Company Number: US-AMGEN-USASP2019189858

PATIENT
  Age: 64 Year
  Sex: Female

DRUGS (12)
  1. ALBUTEROL [SALBUTAMOL] [Concomitant]
     Active Substance: ALBUTEROL
  2. METOPROLOL. [Concomitant]
     Active Substance: METOPROLOL
     Dosage: 25 MILLIGRAM, TID
  3. SPIRIVA [Concomitant]
     Active Substance: TIOTROPIUM BROMIDE MONOHYDRATE
  4. PRILOSEC [Concomitant]
     Active Substance: OMEPRAZOLE MAGNESIUM
  5. PROLIA [Suspect]
     Active Substance: DENOSUMAB
     Indication: OSTEOPOROSIS
     Dosage: UNK, Q6MO
     Route: 065
     Dates: start: 2014, end: 20190819
  6. ADVAIR HFA [Concomitant]
     Active Substance: FLUTICASONE PROPIONATE\SALMETEROL XINAFOATE
  7. ZANTAC [Suspect]
     Active Substance: RANITIDINE HYDROCHLORIDE
     Indication: PRODUCT USED FOR UNKNOWN INDICATION
     Route: 065
  8. NEXIUM I.V. [Concomitant]
     Active Substance: ESOMEPRAZOLE SODIUM
  9. PEPCID [Concomitant]
     Active Substance: FAMOTIDINE
  10. PROTONIX [OMEPRAZOLE] [Concomitant]
     Active Substance: OMEPRAZOLE
  11. ISONIAZID. [Suspect]
     Active Substance: ISONIAZID
     Indication: PNEUMONIA
     Dosage: 1500 MILLIGRAM, THREE MONTHS
     Route: 065
  12. CALCIUM [Concomitant]
     Active Substance: CALCIUM

REACTIONS (47)
  - Atrial thrombosis [Unknown]
  - Post procedural fever [Unknown]
  - Amnesia [Unknown]
  - Vomiting [Unknown]
  - Alopecia [Not Recovered/Not Resolved]
  - Mycobacterium avium complex infection [Unknown]
  - Inguinal hernia [Unknown]
  - Pulmonary mass [Unknown]
  - Toothache [Unknown]
  - Periarthritis [Unknown]
  - Back pain [Not Recovered/Not Resolved]
  - Dry skin [Unknown]
  - Weight decreased [Unknown]
  - Malnutrition [Unknown]
  - Palpitations [Unknown]
  - Gastric disorder [Unknown]
  - Headache [Not Recovered/Not Resolved]
  - Bronchitis [Unknown]
  - Abdominal discomfort [Not Recovered/Not Resolved]
  - Pain in jaw [Not Recovered/Not Resolved]
  - Dizziness [Not Recovered/Not Resolved]
  - Eczema [Unknown]
  - Cardiac myxoma [Unknown]
  - Pancreatitis chronic [Unknown]
  - Migraine [Unknown]
  - Immune system disorder [Unknown]
  - Insomnia [Unknown]
  - Musculoskeletal pain [Unknown]
  - Blindness [Unknown]
  - Myocardial infarction [Unknown]
  - Nausea [Unknown]
  - Ulcer [Unknown]
  - Tooth loss [Unknown]
  - Dizziness postural [Unknown]
  - Anxiety [Unknown]
  - Hypertension [Unknown]
  - Pain in extremity [Unknown]
  - Dementia Alzheimer^s type [Unknown]
  - Pneumonia [Not Recovered/Not Resolved]
  - Adverse event [Unknown]
  - Degenerative bone disease [Unknown]
  - Diarrhoea [Unknown]
  - Dry mouth [Unknown]
  - Pulmonary function test abnormal [Unknown]
  - Aphasia [Unknown]
  - Fatigue [Unknown]
  - Lethargy [Unknown]

NARRATIVE: CASE EVENT DATE: 2014
